FAERS Safety Report 17836471 (Version 1)
Quarter: 2020Q2

REPORT INFORMATION
  Report Type: Report from Study
  Country: US (occurrence: US)
  Receive Date: 20200529
  Receipt Date: 20200529
  Transmission Date: 20200714
  Serious: No
  Sender: FDA-Public Use
  Company Number: NVSC2020US147564

PATIENT
  Sex: Male

DRUGS (1)
  1. ENTRESTO [Suspect]
     Active Substance: SACUBITRIL\VALSARTAN
     Indication: CARDIAC FAILURE
     Dosage: 100 MG, BID (FOUR TIMES A DAY)
     Route: 048
     Dates: start: 201910

REACTIONS (2)
  - Therapeutic product effect incomplete [Recovering/Resolving]
  - Inappropriate schedule of product administration [Unknown]
